FAERS Safety Report 7450754-5 (Version None)
Quarter: 2011Q2

REPORT INFORMATION
  Report Type: 
  Country: None (occurrence: None)
  Receive Date: 20110502
  Receipt Date: 20110420
  Transmission Date: 20111010
  Serious: Yes (Death, Hospitalization)
  Sender: FDA-Public Use
  Company Number: JP-ELI_LILLY_AND_COMPANY-JP201103000815

PATIENT
  Sex: Male
  Weight: 56.2 kg

DRUGS (10)
  1. OXYCONTIN [Concomitant]
     Indication: CANCER PAIN
     Dosage: 10 MG, QD
     Route: 048
  2. MICARDIS [Concomitant]
     Indication: HYPERTENSION
     Dosage: 40 MG, QD
     Route: 048
  3. LOXONIN [Concomitant]
     Indication: CANCER PAIN
     Dosage: 180 MG, QD
     Route: 048
  4. OMEPRAZOLE [Concomitant]
     Indication: GASTROOESOPHAGEAL REFLUX PROPHYLAXIS
     Dosage: 20 MG, QD
     Route: 048
  5. NORVASC [Concomitant]
     Indication: HYPERTENSION
     Dosage: 25 MG, QD
     Route: 048
  6. MAGLAX [Concomitant]
     Indication: CONSTIPATION
     Dosage: 330 MG, QD
     Route: 048
  7. SEROTONE [Concomitant]
     Indication: PROPHYLAXIS OF NAUSEA AND VOMITING
     Dosage: 10 MG, QD
     Route: 042
  8. PANSPORIN [Concomitant]
     Indication: INFECTION PROPHYLAXIS
     Dosage: 1 G, QD
     Route: 042
  9. GEMZAR [Suspect]
     Indication: PANCREATIC CARCINOMA NON-RESECTABLE
     Dosage: 1200 MG, UNK
     Route: 042
     Dates: start: 20110218, end: 20110218
  10. NOVAMIN [Concomitant]
     Indication: PROPHYLAXIS OF NAUSEA AND VOMITING
     Dosage: 15 UG, QD
     Route: 048

REACTIONS (3)
  - PANCREATIC CARCINOMA NON-RESECTABLE [None]
  - DISEASE PROGRESSION [None]
  - ABDOMINAL PAIN [None]
